FAERS Safety Report 19363795 (Version 1)
Quarter: 2021Q2

REPORT INFORMATION
  Report Type: Spontaneous
  Country: JP (occurrence: JP)
  Receive Date: 20210602
  Receipt Date: 20210602
  Transmission Date: 20210717
  Serious: Yes (Other)
  Sender: FDA-Public Use
  Company Number: JP-PFIZER INC-2021591342

PATIENT
  Sex: Female

DRUGS (1)
  1. CELECOX [Suspect]
     Active Substance: CELECOXIB
     Indication: COMPRESSION FRACTURE
     Route: 048

REACTIONS (3)
  - Off label use [Unknown]
  - Constipation [Unknown]
  - Rectal ulcer [Unknown]
